FAERS Safety Report 6263969-9 (Version None)
Quarter: 2009Q3

REPORT INFORMATION
  Report Type: 
  Country: None (occurrence: None)
  Receive Date: 20090701
  Receipt Date: 20090414
  Transmission Date: 20100115
  Serious: Yes (Hospitalization, Other)
  Sender: FDA-Public Use
  Company Number: 179492USA

PATIENT
  Age: 9 Year
  Sex: Female

DRUGS (1)
  1. LAMOTRIGINE [Suspect]
     Dates: start: 20080101

REACTIONS (7)
  - ABNORMAL BEHAVIOUR [None]
  - ANXIETY [None]
  - CONVULSION [None]
  - HALLUCINATION [None]
  - HYPERVENTILATION [None]
  - SOCIAL AVOIDANT BEHAVIOUR [None]
  - TREMOR [None]
